FAERS Safety Report 24785163 (Version 1)
Quarter: 2024Q4

REPORT INFORMATION
  Report Type: Spontaneous
  Country: US (occurrence: None)
  Receive Date: 20241227
  Receipt Date: 20241227
  Transmission Date: 20250114
  Serious: Yes (Hospitalization)
  Sender: Public
  Company Number: None

PATIENT
  Age: 72 Year
  Sex: Male
  Weight: 112.15 kg

DRUGS (2)
  1. DARATUMUMAB\HYALURONIDASE-FIHJ [Suspect]
     Active Substance: DARATUMUMAB\HYALURONIDASE-FIHJ
     Dates: end: 20230411
  2. LENALIDOMIDE [Suspect]
     Active Substance: LENALIDOMIDE
     Dates: end: 20230418

REACTIONS (6)
  - Papilloedema [None]
  - Retinal artery occlusion [None]
  - Optic ischaemic neuropathy [None]
  - Blindness [None]
  - Giant cell arteritis [None]
  - Arteriosclerosis [None]

NARRATIVE: CASE EVENT DATE: 20230425
